FAERS Safety Report 9530005 (Version 5)
Quarter: 2014Q2

REPORT INFORMATION
  Report Type: Spontaneous
  Country: US (occurrence: US)
  Receive Date: 20130917
  Receipt Date: 20140501
  Transmission Date: 20141212
  Serious: Yes (Hospitalization, Disabling, Other)
  Sender: FDA-Public Use
  Company Number: US-009507513-1309USA005943

PATIENT
  Sex: Female
  Weight: 88.89 kg

DRUGS (1)
  1. FOSAMAX [Suspect]
     Indication: OSTEOPOROSIS
     Dosage: 70 MG, QW
     Route: 048

REACTIONS (22)
  - Femur fracture [Recovered/Resolved]
  - Intramedullary rod insertion [Unknown]
  - Device breakage [Not Recovered/Not Resolved]
  - Femur fracture [Unknown]
  - Intramedullary rod insertion [Unknown]
  - Toe amputation [Unknown]
  - Osteonecrosis of jaw [Not Recovered/Not Resolved]
  - Dental caries [Unknown]
  - Dental caries [Unknown]
  - Rheumatoid arthritis [Unknown]
  - Tooth extraction [Unknown]
  - Anaemia [Not Recovered/Not Resolved]
  - Leukopenia [Not Recovered/Not Resolved]
  - Furuncle [Unknown]
  - Debridement [Unknown]
  - Haemorrhagic anaemia [Unknown]
  - Skin abrasion [Unknown]
  - Radius fracture [Recovered/Resolved]
  - Dermatitis allergic [Unknown]
  - Cellulitis [Unknown]
  - Osteopenia [Unknown]
  - Flatulence [Unknown]
